FAERS Safety Report 5783924-2 (Version None)
Quarter: 2008Q2

REPORT INFORMATION
  Report Type: 
  Country: None (occurrence: None)
  Receive Date: 20080605
  Receipt Date: 20080423
  Transmission Date: 20081010
  Serious: No
  Sender: FDA-Public Use
  Company Number: A0717577A

PATIENT
  Age: 34 Year
  Sex: Female
  Weight: 81 kg

DRUGS (2)
  1. ALLI [Suspect]
  2. VITAMIN [Concomitant]
     Dosage: 1TAB PER DAY

REACTIONS (2)
  - MENSTRUATION DELAYED [None]
  - PHARMACEUTICAL PRODUCT COMPLAINT [None]
